FAERS Safety Report 7008614-X (Version None)
Quarter: 2010Q3

REPORT INFORMATION
  Report Type: 
  Country: None (occurrence: None)
  Receive Date: 20100922
  Receipt Date: 20100909
  Transmission Date: 20110219
  Serious: No
  Sender: FDA-Public Use
  Company Number: IT-ELI_LILLY_AND_COMPANY-IT201009002149

PATIENT
  Sex: Female

DRUGS (7)
  1. XERISTAR [Suspect]
     Indication: DEPRESSION
     Dosage: 30 MG, DAILY (1/D)
     Route: 048
     Dates: start: 20100901, end: 20100907
  2. SINTROM [Concomitant]
     Indication: CARDIAC VALVE DISEASE
     Dosage: 17 MG, WEEKLY (1/W)
     Route: 048
     Dates: start: 19881001, end: 20100907
  3. SINTROM [Concomitant]
     Dosage: 16 MG, WEEKLY (1/W)
     Dates: start: 20100909
  4. LANOXIN [Concomitant]
     Dosage: 1 D/F, UNK
     Route: 048
  5. ENAPREN [Concomitant]
     Dosage: 2.5 MG, UNK
     Route: 048
  6. CACIT [Concomitant]
     Route: 048
  7. NEXIUM [Concomitant]
     Dosage: UNK, UNK
     Route: 048

REACTIONS (1)
  - INTERNATIONAL NORMALISED RATIO INCREASED [None]
